FAERS Safety Report 9684202 (Version 1)
Quarter: 2013Q4

REPORT INFORMATION
  Report Type: Spontaneous
  Country: US (occurrence: None)
  Receive Date: 20131111
  Receipt Date: 20131111
  Transmission Date: 20140711
  Serious: Yes (Hospitalization, Other)
  Sender: FDA-Public Use
  Company Number: None

PATIENT
  Age: 30 Year
  Sex: Female
  Weight: 44.45 kg

DRUGS (1)
  1. XIFAXAN [Suspect]
     Indication: IRRITABLE BOWEL SYNDROME
     Dosage: 1 PILL TWICE DAILY TAKEN BY MOUTH
     Route: 048
     Dates: start: 20131029, end: 20131030

REACTIONS (5)
  - Rash generalised [None]
  - Pruritus [None]
  - Paraesthesia [None]
  - Drug ineffective [None]
  - Hepatic enzyme increased [None]
